FAERS Safety Report 9890209 (Version 1)
Quarter: 2014Q1

REPORT INFORMATION
  Report Type: Spontaneous
  Country: US (occurrence: US)
  Receive Date: 20140212
  Receipt Date: 20140212
  Transmission Date: 20141002
  Serious: No
  Sender: FDA-Public Use
  Company Number: US-BIOGENIDEC-2014BI011859

PATIENT
  Sex: Male

DRUGS (11)
  1. TECFIDERA [Suspect]
     Indication: MULTIPLE SCLEROSIS
     Route: 048
     Dates: start: 20131023, end: 20131029
  2. TECFIDERA [Suspect]
     Indication: MULTIPLE SCLEROSIS
     Route: 048
     Dates: start: 20131030
  3. METFORMIN [Concomitant]
  4. BACLOFEN [Concomitant]
  5. BENAZEPRIL [Concomitant]
  6. CRESTOR [Concomitant]
  7. GLIMPRIDE [Concomitant]
  8. CITALOPRAM [Concomitant]
  9. LANTUS [Concomitant]
  10. FISH OIL [Concomitant]
  11. VITAMIN D3 [Concomitant]

REACTIONS (2)
  - Asthenia [Unknown]
  - Fatigue [Unknown]
